FAERS Safety Report 19678748 (Version 1)
Quarter: 2021Q3

REPORT INFORMATION
  Report Type: Spontaneous
  Country: US (occurrence: US)
  Receive Date: 20210809
  Receipt Date: 20210809
  Transmission Date: 20211014
  Serious: No
  Sender: FDA-Public Use
  Company Number: None

PATIENT
  Sex: Female
  Weight: 94.5 kg

DRUGS (23)
  1. FAMOTIDINE 20 MG/2 ML VIAL [Concomitant]
  2. VITAMIN B12 [Concomitant]
     Active Substance: CYANOCOBALAMIN
  3. METFORMIN [Concomitant]
     Active Substance: METFORMIN HYDROCHLORIDE
  4. METOPROLOL SUCCINATE ER [Concomitant]
     Active Substance: METOPROLOL SUCCINATE
  5. ATORVASTATIN [Concomitant]
     Active Substance: ATORVASTATIN
  6. SANCUSO [Concomitant]
     Active Substance: GRANISETRON
  7. CYCLOPHOSPHAMIDE. [Suspect]
     Active Substance: CYCLOPHOSPHAMIDE
     Indication: BREAST CANCER FEMALE
     Dosage: ?          OTHER FREQUENCY:ONCE EVERY 21 DAYS;?
     Route: 042
  8. MESNA 1 G/10 ML VIAL [Concomitant]
  9. PALONOSETRON 0.25 MG [Concomitant]
  10. ONDANSETRON [Concomitant]
     Active Substance: ONDANSETRON
  11. LOMOTIL [Concomitant]
     Active Substance: ATROPINE SULFATE\DIPHENOXYLATE HYDROCHLORIDE
  12. MYRBETRIQ [Concomitant]
     Active Substance: MIRABEGRON
  13. XARELTO [Concomitant]
     Active Substance: RIVAROXABAN
  14. CEPHALEXIN. [Concomitant]
     Active Substance: CEPHALEXIN
  15. FOLIC ACID. [Concomitant]
     Active Substance: FOLIC ACID
  16. ZIEXTENZO [Concomitant]
     Active Substance: PEGFILGRASTIM-BMEZ
  17. TRAMADOL. [Concomitant]
     Active Substance: TRAMADOL
  18. DOCETAXEL. [Suspect]
     Active Substance: DOCETAXEL
     Indication: BREAST CANCER FEMALE
     Dosage: ?          OTHER FREQUENCY:ONCE EVERY 3 WEEKS;?
     Route: 042
  19. FUROSEMIDE. [Concomitant]
     Active Substance: FUROSEMIDE
  20. ENOXAPARIN [Concomitant]
     Active Substance: ENOXAPARIN
  21. DEXAMETHASONE 10 MG/ML VIAL [Concomitant]
  22. DIPHENHYDRAMINE 50 MG/ML VIAL [Concomitant]
  23. FULPHILA [Concomitant]
     Active Substance: PEGFILGRASTIM-JMDB

REACTIONS (1)
  - Respiratory failure [None]
